FAERS Safety Report 12957432 (Version 2)
Quarter: 2016Q4

REPORT INFORMATION
  Report Type: Report from Study
  Country: PR (occurrence: US)
  Receive Date: 20161118
  Receipt Date: 20161209
  Transmission Date: 20170207
  Serious: No
  Sender: FDA-Public Use
  Company Number: US-ACTELION-A-NJ2016-138547

PATIENT
  Age: 63 Year
  Sex: Female

DRUGS (18)
  1. OMEGA 3 6 9 [Suspect]
     Active Substance: FISH OIL
     Indication: PRODUCT USED FOR UNKNOWN INDICATION
     Route: 065
  2. CLONAZEPAM. [Concomitant]
     Active Substance: CLONAZEPAM
     Dosage: 2 MG, UNK
  3. KAYEXALATE [Concomitant]
     Active Substance: SODIUM POLYSTYRENE SULFONATE
  4. LOSARTAN POTASSIUM. [Concomitant]
     Active Substance: LOSARTAN POTASSIUM
     Dosage: 100 MG, QD
     Route: 048
     Dates: start: 2011
  5. RANITIDINE HCL [Concomitant]
     Active Substance: RANITIDINE HYDROCHLORIDE
  6. LISINOPRIL. [Concomitant]
     Active Substance: LISINOPRIL
     Dosage: 40 MG, QD
  7. NABUMETONE. [Concomitant]
     Active Substance: NABUMETONE
     Dosage: 500 MG, BID
  8. RENVELA [Concomitant]
     Active Substance: SEVELAMER CARBONATE
     Dosage: 800 MG, QD
     Route: 048
  9. CLONIDINE HCL [Concomitant]
     Active Substance: CLONIDINE HYDROCHLORIDE
     Dosage: 0.3 MG, BID
  10. HYDRALAZINE [Concomitant]
     Active Substance: HYDRALAZINE HYDROCHLORIDE
     Dosage: 100 MG, BID
  11. NIFEDIPINE. [Concomitant]
     Active Substance: NIFEDIPINE
     Dosage: 90 MG, QD
     Route: 048
     Dates: start: 2011
  12. XANAX [Concomitant]
     Active Substance: ALPRAZOLAM
     Dosage: 1 MG, UNK
  13. TRACLEER [Suspect]
     Active Substance: BOSENTAN
     Indication: PULMONARY ARTERIAL HYPERTENSION
     Dosage: UNK UNK, BID
     Route: 048
     Dates: start: 20120919
  14. RENVELA [Concomitant]
     Active Substance: SEVELAMER CARBONATE
     Dosage: 2400 MG, TID WITH MEALS
     Route: 048
     Dates: start: 2011
  15. METOPROLOL TARTRATE. [Concomitant]
     Active Substance: METOPROLOL TARTRATE
     Dosage: 50 MG, BID
     Route: 048
     Dates: start: 2011
  16. ENALAPRIL [Concomitant]
     Active Substance: ENALAPRIL
     Dosage: 10 MG, UNK
  17. MINOXIDIL. [Concomitant]
     Active Substance: MINOXIDIL
     Dosage: 2.5 MG, BID
  18. METOPROLOL TARTRATE. [Concomitant]
     Active Substance: METOPROLOL TARTRATE
     Dosage: 50 MG, QD

REACTIONS (8)
  - Insomnia [Recovered/Resolved]
  - Heart rate increased [Recovered/Resolved]
  - Cyanosis [Not Recovered/Not Resolved]
  - Oedema [Not Recovered/Not Resolved]
  - Fall [Not Recovered/Not Resolved]
  - Pain in extremity [Not Recovered/Not Resolved]
  - Decreased appetite [Recovered/Resolved]
  - Arthralgia [Not Recovered/Not Resolved]

NARRATIVE: CASE EVENT DATE: 20160614
